FAERS Safety Report 11154794 (Version 1)
Quarter: 2015Q2

REPORT INFORMATION
  Report Type: Spontaneous
  Country: BR (occurrence: BR)
  Receive Date: 20150602
  Receipt Date: 20150602
  Transmission Date: 20150821
  Serious: Yes (Other)
  Sender: FDA-Public Use
  Company Number: BR-PFIZER INC-2015179719

PATIENT
  Age: 77 Year
  Sex: Male
  Weight: 78 kg

DRUGS (2)
  1. XALATAN [Suspect]
     Active Substance: LATANOPROST
     Indication: INTRAOCULAR PRESSURE INCREASED
     Dosage: 1 DROP IN BOTH EYES (3UG)
     Route: 047
     Dates: start: 2014, end: 201410
  2. XALATAN [Suspect]
     Active Substance: LATANOPROST
     Dosage: ONE DROP ONE IN LEFT EYE (1.5 ?G)
     Route: 047
     Dates: start: 201410, end: 201501

REACTIONS (2)
  - Intraocular pressure increased [Unknown]
  - Eye disorder [Unknown]

NARRATIVE: CASE EVENT DATE: 2015
